FAERS Safety Report 8178275-5 (Version None)
Quarter: 2012Q1

REPORT INFORMATION
  Report Type: 
  Country: None (occurrence: None)
  Receive Date: 20120126
  Receipt Date: 20111102
  Transmission Date: 20120608
  Serious: No
  Sender: FDA-Public Use
  Company Number: PHHY2011US43025

PATIENT
  Age: 85 Year
  Sex: Female

DRUGS (4)
  1. AFINITOR [Suspect]
     Indication: RENAL CELL CARCINOMA
     Dosage: 10 MG, QD, ORAL
     Route: 048
     Dates: start: 20110516, end: 20110618
  2. LEVOTHYROXINE SODIUM [Concomitant]
  3. TOPROL-XL [Concomitant]
  4. LOVASTATIN [Concomitant]

REACTIONS (7)
  - VISION BLURRED [None]
  - LACRIMATION INCREASED [None]
  - HEADACHE [None]
  - OEDEMA PERIPHERAL [None]
  - PHOTOPHOBIA [None]
  - RASH [None]
  - DYSGEUSIA [None]
